FAERS Safety Report 6089693-3 (Version None)
Quarter: 2009Q1

REPORT INFORMATION
  Report Type: 
  Country: None (occurrence: None)
  Receive Date: 20090224
  Receipt Date: 20090210
  Transmission Date: 20090719
  Serious: No
  Sender: FDA-Public Use
  Company Number: US-B.I. PHARMACEUTICALS,INC./RIDGEFIELD-2009-BP-02127BP

PATIENT
  Age: 66 Year
  Sex: Female

DRUGS (1)
  1. METACAM ORAL SUSPENSION [Suspect]
     Route: 048

REACTIONS (7)
  - ACCIDENTAL EXPOSURE [None]
  - GLOSSODYNIA [None]
  - OROPHARYNGEAL PAIN [None]
  - PHARYNGEAL OEDEMA [None]
  - STOMATITIS [None]
  - TONGUE DISORDER [None]
  - TONGUE OEDEMA [None]
